FAERS Safety Report 24690568 (Version 2)
Quarter: 2024Q4

REPORT INFORMATION
  Report Type: Spontaneous
  Country: NL (occurrence: NL)
  Receive Date: 20241203
  Receipt Date: 20241225
  Transmission Date: 20250114
  Serious: Yes (Other)
  Sender: ROCHE
  Company Number: NL-002147023-NVSC2024NL225838

PATIENT
  Age: 43 Year
  Sex: Female

DRUGS (3)
  1. XOLAIR [Suspect]
     Active Substance: OMALIZUMAB
     Indication: Chronic spontaneous urticaria
     Dosage: UNK
     Route: 050
  2. AMOXICILLIN [Suspect]
     Active Substance: AMOXICILLIN
     Indication: Product used for unknown indication
     Dosage: 750 MG (1X PER DAY FOR 7 DAYS)
     Route: 065
     Dates: start: 20240827, end: 20240901
  3. DIPROSONE [Concomitant]
     Active Substance: BETAMETHASONE DIPROPIONATE
     Indication: Product used for unknown indication
     Route: 065

REACTIONS (9)
  - Angioedema [Unknown]
  - Urticaria [Unknown]
  - Pruritus [Unknown]
  - Peripheral swelling [Unknown]
  - Joint swelling [Unknown]
  - Swelling of eyelid [Unknown]
  - Lip swelling [Unknown]
  - Malaise [Unknown]
  - Therapeutic product effect decreased [Unknown]

NARRATIVE: CASE EVENT DATE: 20240831
